FAERS Safety Report 17020625 (Version 1)
Quarter: 2019Q4

REPORT INFORMATION
  Report Type: Spontaneous
  Country: CN (occurrence: CN)
  Receive Date: 20191112
  Receipt Date: 20191112
  Transmission Date: 20200122
  Serious: Yes (Hospitalization)
  Sender: FDA-Public Use
  Company Number: CN-PFIZER INC-2019482991

PATIENT
  Age: 73 Year
  Sex: Male
  Weight: 71 kg

DRUGS (6)
  1. ASPIRIN (E.C.) [Concomitant]
     Active Substance: ASPIRIN
     Indication: CORONARY ARTERIAL STENT INSERTION
     Dosage: 0.1 G, 1X/DAY (QM)
     Route: 048
     Dates: start: 20190111
  2. ASPIRIN (E.C.) [Concomitant]
     Active Substance: ASPIRIN
     Indication: SURGERY
  3. RABEPRAZOLE [Concomitant]
     Active Substance: RABEPRAZOLE
     Indication: ABDOMINAL DISCOMFORT
     Dosage: 10 MG, 1X/DAY (QD)
     Route: 048
     Dates: start: 20190111
  4. LIPITOR [Suspect]
     Active Substance: ATORVASTATIN CALCIUM
     Indication: ARTERIAL STIFFNESS
     Dosage: 20 MG, 1X/DAY (QN)
     Route: 048
     Dates: start: 20190111, end: 20190122
  5. TICAGRELOR. [Concomitant]
     Active Substance: TICAGRELOR
     Indication: CORONARY ARTERIAL STENT INSERTION
     Dosage: 90 MG, 2X/DAY (BID)
     Route: 048
     Dates: start: 20190111
  6. TICAGRELOR. [Concomitant]
     Active Substance: TICAGRELOR
     Indication: SURGERY

REACTIONS (3)
  - Coagulation time prolonged [Recovering/Resolving]
  - Blood pressure diastolic decreased [Unknown]
  - Hepatic function abnormal [Recovering/Resolving]

NARRATIVE: CASE EVENT DATE: 20190122
